FAERS Safety Report 7982666-2 (Version None)
Quarter: 2011Q4

REPORT INFORMATION
  Report Type: 
  Country: None (occurrence: None)
  Receive Date: 20111215
  Receipt Date: 20111205
  Transmission Date: 20120403
  Serious: Yes (Other)
  Sender: FDA-Public Use
  Company Number: US-ALEXION-A201101830

PATIENT
  Age: 18 Year
  Sex: Female

DRUGS (3)
  1. SOLIRIS [Suspect]
     Indication: PAROXYSMAL NOCTURNAL HAEMOGLOBINURIA
     Route: 042
  2. SOLIRIS [Suspect]
     Route: 042
  3. FONDAPARINUX SODIUM [Concomitant]

REACTIONS (3)
  - BUDD-CHIARI SYNDROME [None]
  - HEPATIC CONGESTION [None]
  - INFERIOR VENA CAVAL OCCLUSION [None]
